FAERS Safety Report 12153049 (Version 2)
Quarter: 2016Q2

REPORT INFORMATION
  Report Type: Spontaneous
  Country: DE (occurrence: DE)
  Receive Date: 20160305
  Receipt Date: 20160428
  Transmission Date: 20160815
  Serious: Yes (Death, Other)
  Sender: FDA-Public Use
  Company Number: DE-BRISTOL-MYERS SQUIBB COMPANY-BMS-2016-016130

PATIENT
  Age: 46 Year
  Sex: Female

DRUGS (1)
  1. OPDIVO [Suspect]
     Active Substance: NIVOLUMAB
     Indication: BREAST CANCER
     Route: 065

REACTIONS (4)
  - Malignant neoplasm progression [Fatal]
  - Off label use [Unknown]
  - Fall [Unknown]
  - Nervous system disorder [Recovering/Resolving]
